FAERS Safety Report 7114254-4 (Version None)
Quarter: 2010Q4

REPORT INFORMATION
  Report Type: 
  Country: None (occurrence: None)
  Receive Date: 20101119
  Receipt Date: 20101115
  Transmission Date: 20110411
  Serious: Yes (Death, Other)
  Sender: FDA-Public Use
  Company Number: GB-ROCHE-742763

PATIENT

DRUGS (4)
  1. CAPECITABINE [Suspect]
     Indication: GASTROOESOPHAGEAL CANCER
     Dosage: ONGOING STATUS UNKNOWN AT THE TIME OF DEATH
     Route: 065
  2. PANITUMUMAB [Suspect]
     Indication: GASTROOESOPHAGEAL CANCER
     Dosage: ONGOING STATUS UNKNOWN AT THE TIME OF DEATH
     Route: 065
  3. OXALIPLATIN [Suspect]
     Indication: GASTROOESOPHAGEAL CANCER
     Dosage: ONGOING STATUS UNKNOWN AT THE TIME OF DEATH
     Route: 065
  4. EPIRUBICIN [Suspect]
     Indication: GASTROOESOPHAGEAL CANCER
     Dosage: ONGOING STATUS UNKNOWN AT THE TIME OF DEATH
     Route: 065

REACTIONS (3)
  - DIARRHOEA [None]
  - NEUTROPENIA [None]
  - SEPSIS [None]
